FAERS Safety Report 5807906-7 (Version None)
Quarter: 2008Q3

REPORT INFORMATION
  Report Type: 
  Country: None (occurrence: None)
  Receive Date: 20080711
  Receipt Date: 20080701
  Transmission Date: 20090109
  Serious: Yes (Other)
  Sender: FDA-Public Use
  Company Number: FR-PFIZER INC-2008051966

PATIENT
  Age: 25 Year
  Sex: Female

DRUGS (1)
  1. RELPAX [Suspect]
     Indication: MIGRAINE WITH AURA
     Route: 048

REACTIONS (2)
  - MUSCLE CONTRACTURE [None]
  - TRISMUS [None]
